FAERS Safety Report 14023611 (Version 1)
Quarter: 2017Q3

REPORT INFORMATION
  Report Type: Spontaneous
  Country: US (occurrence: US)
  Receive Date: 20170928
  Receipt Date: 20170928
  Transmission Date: 20171128
  Serious: No
  Sender: FDA-Public Use
  Company Number: US-SA-2016SA222093

PATIENT
  Age: 60 Year
  Sex: Female

DRUGS (15)
  1. TRIAMTERENE. [Concomitant]
     Active Substance: TRIAMTERENE
  2. PREMPRO [Concomitant]
     Active Substance: ESTROGENS, CONJUGATED\MEDROXYPROGESTERONE ACETATE
  3. NUVIGIL [Concomitant]
     Active Substance: ARMODAFINIL
  4. FLUCONAZOLE. [Concomitant]
     Active Substance: FLUCONAZOLE
  5. ARIPIPRAZOLE. [Concomitant]
     Active Substance: ARIPIPRAZOLE
  6. AMPYRA [Concomitant]
     Active Substance: DALFAMPRIDINE
  7. LEVOTHYROXINE SODIUM. [Concomitant]
     Active Substance: LEVOTHYROXINE SODIUM
  8. ALBUTEROL. [Concomitant]
     Active Substance: ALBUTEROL
  9. HYDROCODONE W/ACETAMINOPHEN [Concomitant]
     Active Substance: ACETAMINOPHEN\HYDROCODONE BITARTRATE
  10. XANAX [Concomitant]
     Active Substance: ALPRAZOLAM
  11. AUBAGIO [Suspect]
     Active Substance: TERIFLUNOMIDE
     Indication: MULTIPLE SCLEROSIS
     Route: 048
  12. KADIAN [Concomitant]
     Active Substance: MORPHINE SULFATE
  13. ESTROGENS CONJUGATED [Concomitant]
     Active Substance: ESTROGENS, CONJUGATED
  14. ALPRAZOLAM. [Concomitant]
     Active Substance: ALPRAZOLAM
  15. PROVENTIL [Concomitant]
     Active Substance: ALBUTEROL

REACTIONS (5)
  - Fatigue [Unknown]
  - Skin infection [Unknown]
  - Fungal infection [Unknown]
  - Central nervous system lesion [Unknown]
  - Pain in extremity [Not Recovered/Not Resolved]

NARRATIVE: CASE EVENT DATE: 1996
